FAERS Safety Report 5148712-9 (Version None)
Quarter: 2006Q4

REPORT INFORMATION
  Report Type: 
  Country: None (occurrence: None)
  Receive Date: 20061112
  Receipt Date: 20061103
  Transmission Date: 20070319
  Serious: Yes (Other)
  Sender: FDA-Public Use
  Company Number: PH-JNJFOC-20061101330

PATIENT
  Age: 12 Year
  Sex: Male

DRUGS (2)
  1. CONCERTA [Suspect]
     Indication: ATTENTION DEFICIT/HYPERACTIVITY DISORDER
     Route: 048
  2. RISPERDAL [Suspect]
     Indication: ABNORMAL BEHAVIOUR
     Route: 048

REACTIONS (1)
  - TOURETTE'S DISORDER [None]
